FAERS Safety Report 8435324-4 (Version None)
Quarter: 2012Q2

REPORT INFORMATION
  Report Type: 
  Country: None (occurrence: None)
  Receive Date: 20120614
  Receipt Date: 20120608
  Transmission Date: 20120825
  Serious: Yes (Hospitalization, Other)
  Sender: FDA-Public Use
  Company Number: US-PFIZER INC-2009314343

PATIENT
  Sex: Male

DRUGS (2)
  1. PENICILLIN NOS [Concomitant]
     Dosage: UNK
     Dates: start: 19900806, end: 19900807
  2. DILANTIN-125 [Suspect]
     Indication: CONVULSION
     Dosage: 50 MG, 3X/DAY,
     Dates: start: 19900701

REACTIONS (1)
  - STEVENS-JOHNSON SYNDROME [None]
